FAERS Safety Report 8612222-4 (Version None)
Quarter: 2012Q3

REPORT INFORMATION
  Report Type: 
  Country: None (occurrence: None)
  Receive Date: 20120822
  Receipt Date: 20120816
  Transmission Date: 20120928
  Serious: Yes (Hospitalization, Other)
  Sender: FDA-Public Use
  Company Number: GB-JNJFOC-20120512247

PATIENT
  Age: 63 Year
  Sex: Male

DRUGS (3)
  1. ZOCOR [Interacting]
     Indication: PRODUCT USED FOR UNKNOWN INDICATION
     Route: 065
  2. CORTICOSTEROID, NOS [Concomitant]
     Indication: PRODUCT USED FOR UNKNOWN INDICATION
     Route: 065
  3. ITRACONAZOLE [Suspect]
     Indication: BRONCHOPULMONARY ASPERGILLOSIS
     Route: 048
     Dates: start: 20120306, end: 20120412

REACTIONS (10)
  - ALANINE AMINOTRANSFERASE INCREASED [None]
  - OEDEMA PERIPHERAL [None]
  - MYOPATHY [None]
  - MOBILITY DECREASED [None]
  - DRUG INTERACTION [None]
  - ASTHENIA [None]
  - MYOSITIS [None]
  - BLOOD CREATINE PHOSPHOKINASE INCREASED [None]
  - CELLULITIS [None]
  - LIVER FUNCTION TEST ABNORMAL [None]
